FAERS Safety Report 23123987 (Version 3)
Quarter: 2024Q4

REPORT INFORMATION
  Report Type: Spontaneous
  Country: US (occurrence: US)
  Receive Date: 20231030
  Receipt Date: 20241227
  Transmission Date: 20250115
  Serious: Yes (Other)
  Sender: BAYER HEALTHCARE PHARMACEUTICALS INC.
  Company Number: US-BAYER-2023A149983

PATIENT
  Age: 33 Year
  Sex: Male
  Weight: 90.26 kg

DRUGS (4)
  1. JIVI [Suspect]
     Active Substance: DAMOCTOCOG ALFA PEGOL
     Indication: Factor VIII deficiency
     Dosage: JIVI 2000IU: INFUSE~ 4000 UNITS DAILY AS NEEDED
     Route: 042
     Dates: start: 20230104
  2. JIVI [Suspect]
     Active Substance: DAMOCTOCOG ALFA PEGOL
     Indication: Factor VIII deficiency
     Dosage: 3 DF
  3. HEMLIBRA [Concomitant]
     Active Substance: EMICIZUMAB-KXWH
     Dosage: LOADING DOSE: 270 MG, QD, FOR 4 WEEKS
     Route: 058
  4. HEMLIBRA [Concomitant]
     Active Substance: EMICIZUMAB-KXWH
     Dosage: BEGIN MAINTENANCE DOSE 7 DAYS AFTER LAST LOADING DOSE

REACTIONS (7)
  - Haemorrhage [None]
  - Haemorrhage [None]
  - Haemorrhage [None]
  - Haemarthrosis [None]
  - Haemarthrosis [Not Recovered/Not Resolved]
  - Haemorrhage [Not Recovered/Not Resolved]
  - Weight increased [None]

NARRATIVE: CASE EVENT DATE: 20231002
